FAERS Safety Report 11132610 (Version 1)
Quarter: 2015Q2

REPORT INFORMATION
  Report Type: Spontaneous
  Country: FR (occurrence: FR)
  Receive Date: 20150522
  Receipt Date: 20150522
  Transmission Date: 20150821
  Serious: Yes (Other)
  Sender: FDA-Public Use
  Company Number: FR-UCBSA-2014012344

PATIENT
  Age: 34 Year
  Sex: Female

DRUGS (4)
  1. KEPPRA [Suspect]
     Active Substance: LEVETIRACETAM
     Dosage: 750 MG, 2X/DAY (BID)
     Route: 048
     Dates: start: 201502, end: 20150322
  2. KEPPRA [Suspect]
     Active Substance: LEVETIRACETAM
     Indication: EPILEPSY
     Dosage: 1 G, ONE TIME DOSE
     Route: 042
     Dates: start: 20150323, end: 20150323
  3. KEPPRA [Suspect]
     Active Substance: LEVETIRACETAM
     Dosage: 500MG MORNING, 750MG EVENING
  4. KEPPRA [Suspect]
     Active Substance: LEVETIRACETAM
     Indication: EPILEPSY
     Dosage: 500MG
     Route: 048
     Dates: start: 20120727

REACTIONS (6)
  - Twin pregnancy [Unknown]
  - Intrapartum haemorrhage [Recovered/Resolved]
  - Seizure [Recovered/Resolved]
  - Exposure during pregnancy [Unknown]
  - Uterine atony [Recovered/Resolved]
  - Breast feeding [Unknown]

NARRATIVE: CASE EVENT DATE: 20140719
